FAERS Safety Report 9782275 (Version 1)
Quarter: 2013Q4

REPORT INFORMATION
  Report Type: Report from Study
  Country: US (occurrence: US)
  Receive Date: 20131226
  Receipt Date: 20131226
  Transmission Date: 20140711
  Serious: Yes (Other)
  Sender: FDA-Public Use
  Company Number: US-JNJFOC-20131212262

PATIENT
  Age: 66 Year
  Sex: Female
  Weight: 49.9 kg

DRUGS (11)
  1. REMICADE [Suspect]
     Indication: RHEUMATOID ARTHRITIS
     Dosage: 2ND DOSE AROUND 31-OCT-2013
     Route: 042
     Dates: start: 201310
  2. REMICADE [Suspect]
     Indication: RHEUMATOID ARTHRITIS
     Route: 042
     Dates: start: 201310
  3. PLAVIX [Concomitant]
     Indication: CARDIAC DISORDER
     Route: 048
     Dates: start: 1993
  4. ZETIA [Concomitant]
     Indication: BLOOD CHOLESTEROL INCREASED
     Route: 048
     Dates: start: 1993
  5. ZETIA [Concomitant]
     Indication: HYPERTENSION
     Route: 048
     Dates: start: 1993
  6. CADUET [Concomitant]
     Indication: BLOOD CHOLESTEROL INCREASED
     Dosage: 5/80MG
     Route: 048
     Dates: start: 1993
  7. CADUET [Concomitant]
     Indication: HYPERTENSION
     Dosage: 5/80MG
     Route: 048
     Dates: start: 1993
  8. ASPIRIN [Concomitant]
     Indication: CARDIAC DISORDER
     Dates: start: 1993
  9. VITAMIN D [Concomitant]
     Indication: BONE DISORDER
     Route: 048
     Dates: start: 2008
  10. RECLAST [Concomitant]
     Indication: OSTEOPOROSIS
     Route: 065
     Dates: start: 2008
  11. VICODIN [Concomitant]
     Indication: PAIN
     Dosage: 7.5/300MG
     Route: 048
     Dates: start: 2010

REACTIONS (1)
  - Pulmonary mass [Not Recovered/Not Resolved]
